FAERS Safety Report 20324233 (Version 3)
Quarter: 2025Q1

REPORT INFORMATION
  Report Type: Spontaneous
  Country: CA (occurrence: CA)
  Receive Date: 20220111
  Receipt Date: 20250120
  Transmission Date: 20250409
  Serious: Yes (Life-Threatening, Hospitalization, Other)
  Sender: TEVA
  Company Number: CA-TEVA-2022-CA-1997145

PATIENT
  Age: 20 Year
  Sex: Female
  Weight: 68 kg

DRUGS (7)
  1. ACETAMINOPHEN [Suspect]
     Active Substance: ACETAMINOPHEN
     Indication: Suicide attempt
     Route: 048
  2. ACETAMINOPHEN [Suspect]
     Active Substance: ACETAMINOPHEN
     Indication: Suicide attempt
     Route: 048
  3. IBUPROFEN [Suspect]
     Active Substance: IBUPROFEN
     Indication: Suicide attempt
     Route: 048
  4. IBUPROFEN [Suspect]
     Active Substance: IBUPROFEN
     Indication: Suicide attempt
     Route: 048
  5. IBUPROFEN [Suspect]
     Active Substance: IBUPROFEN
     Indication: Suicide attempt
     Route: 048
  6. OXYCODONE [Concomitant]
     Active Substance: OXYCODONE
     Indication: Suicide attempt
     Route: 048
  7. OXYCODONE [Suspect]
     Active Substance: OXYCODONE
     Indication: Overdose
     Route: 048

REACTIONS (20)
  - Mitochondrial toxicity [Unknown]
  - Abdominal tenderness [Unknown]
  - Metabolic acidosis [Unknown]
  - Methaemoglobinaemia [Unknown]
  - Shock [Unknown]
  - Sinus tachycardia [Unknown]
  - Overdose [Recovered/Resolved]
  - Altered state of consciousness [Recovered/Resolved]
  - Analgesic drug level increased [Recovered/Resolved]
  - Tachycardia [Recovered/Resolved]
  - Toxicity to various agents [Recovered/Resolved]
  - Alanine aminotransferase increased [Unknown]
  - Depressed level of consciousness [Unknown]
  - Hypokalaemia [Unknown]
  - Hyponatraemia [Unknown]
  - Hypotension [Unknown]
  - Intentional overdose [Unknown]
  - Hyperkaliuria [Recovered/Resolved]
  - International normalised ratio increased [Unknown]
  - Leukocytosis [Unknown]
